FAERS Safety Report 11929417 (Version 1)
Quarter: 2016Q1

REPORT INFORMATION
  Report Type: Spontaneous
  Country: US (occurrence: None)
  Receive Date: 20160119
  Receipt Date: 20160119
  Transmission Date: 20160526
  Serious: No
  Sender: FDA-Public Use
  Company Number: None

PATIENT
  Age: 23 Year
  Sex: Female
  Weight: 64.86 kg

DRUGS (2)
  1. LIDOCAINE. [Concomitant]
     Active Substance: LIDOCAINE
  2. ORAJEL FOR ALL MOUTH SORES MAXIMUM STRENGTH [Suspect]
     Active Substance: BENZOCAINE
     Indication: STOMATITIS
     Dates: start: 20160114, end: 20160115

REACTIONS (3)
  - Abdominal pain upper [None]
  - Abdominal pain [None]
  - Diarrhoea [None]

NARRATIVE: CASE EVENT DATE: 20160115
